FAERS Safety Report 8100885-1 (Version None)
Quarter: 2012Q1

REPORT INFORMATION
  Report Type: 
  Country: None (occurrence: None)
  Receive Date: 20120129
  Receipt Date: 20110907
  Transmission Date: 20120608
  Serious: No
  Sender: FDA-Public Use
  Company Number: US-ABBOTT-11P-163-0853018-00

PATIENT
  Sex: Male
  Weight: 122.58 kg

DRUGS (1)
  1. HUMIRA [Suspect]
     Indication: RHEUMATOID ARTHRITIS
     Dates: start: 20110701

REACTIONS (10)
  - RHINORRHOEA [None]
  - NAUSEA [None]
  - OEDEMA PERIPHERAL [None]
  - COUGH [None]
  - NIGHT SWEATS [None]
  - ILL-DEFINED DISORDER [None]
  - DYSPHONIA [None]
  - DRUG INEFFECTIVE [None]
  - GAIT DISTURBANCE [None]
  - THROAT IRRITATION [None]
